FAERS Safety Report 17730056 (Version 1)
Quarter: 2020Q2

REPORT INFORMATION
  Report Type: Spontaneous
  Country: US (occurrence: US)
  Receive Date: 20200430
  Receipt Date: 20200430
  Transmission Date: 20200714
  Serious: Yes (Hospitalization)
  Sender: FDA-Public Use
  Company Number: None

PATIENT
  Age: 79 Year
  Sex: Female
  Weight: 49.5 kg

DRUGS (10)
  1. DONEPEZIL 10MG [Concomitant]
     Active Substance: DONEPEZIL
  2. LISINOPRIL 30MG [Concomitant]
     Active Substance: LISINOPRIL
  3. ASPIRIN 81MG [Concomitant]
     Active Substance: ASPIRIN
  4. LANTUS SOLOSTAR 14 UNITS HS [Concomitant]
     Dates: start: 20191107
  5. INSULIN REGULAR SLIDING [Concomitant]
  6. METOPROLOL 75MG [Concomitant]
  7. CALTRATE-D 600/400MG [Concomitant]
  8. EMPAFLIGLOZIN [Suspect]
     Active Substance: EMPAGLIFLOZIN
     Indication: TYPE 2 DIABETES MELLITUS
     Route: 048
     Dates: start: 20191118
  9. LIRAGLUTIDE [Suspect]
     Active Substance: LIRAGLUTIDE
     Indication: TYPE 2 DIABETES MELLITUS
     Route: 058
     Dates: start: 20191226
  10. PRAVASTATIN. [Concomitant]
     Active Substance: PRAVASTATIN

REACTIONS (2)
  - Diabetic ketoacidosis [None]
  - Ketoacidosis [None]

NARRATIVE: CASE EVENT DATE: 20200430
